FAERS Safety Report 4314124-0 (Version None)
Quarter: 2004Q1

REPORT INFORMATION
  Report Type: 
  Country: None (occurrence: None)
  Receive Date: 20040309
  Receipt Date: 20040302
  Transmission Date: 20041129
  Serious: Yes (Hospitalization)
  Sender: FDA-Public Use
  Company Number: US-BRISTOL-MYERS SQUIBB COMPANY-12523320

PATIENT
  Age: 45 Year
  Sex: Male

DRUGS (7)
  1. SERZONE [Suspect]
     Indication: DEPRESSION
     Dosage: LATER INCREASED TO 150 BID
     Route: 048
  2. IMDUR [Concomitant]
  3. KLONOPIN [Concomitant]
  4. BENADRYL [Concomitant]
  5. ECOTRIN [Concomitant]
  6. VISTARIL-PRN [Concomitant]
  7. DILACOR XR [Concomitant]

REACTIONS (10)
  - ALANINE AMINOTRANSFERASE INCREASED [None]
  - ARTHRALGIA [None]
  - ASPARTATE AMINOTRANSFERASE INCREASED [None]
  - CORONARY ARTERY DISEASE [None]
  - DYSURIA [None]
  - GAMMA-GLUTAMYLTRANSFERASE INCREASED [None]
  - HAEMATURIA [None]
  - PAIN IN EXTREMITY [None]
  - SUICIDAL IDEATION [None]
  - URINARY TRACT INFECTION [None]
